FAERS Safety Report 7413390-2 (Version None)
Quarter: 2011Q2

REPORT INFORMATION
  Report Type: 
  Country: None (occurrence: None)
  Receive Date: 20110413
  Receipt Date: 20110404
  Transmission Date: 20111010
  Serious: Yes (Death, Other)
  Sender: FDA-Public Use
  Company Number: IE-PFIZER INC-2008003224

PATIENT
  Age: 66 Year
  Sex: Male

DRUGS (6)
  1. ACETYLSALICYLIC ACID SRT [Concomitant]
  2. AMLODIPINE [Concomitant]
  3. ATORVASTATIN [Concomitant]
  4. ELTROXIN [Concomitant]
  5. PANTOPRAZOLE [Concomitant]
  6. SUNITINIB MALATE [Suspect]
     Indication: METASTATIC RENAL CELL CARCINOMA
     Dosage: 37.5 MG, 1X/DAY, 4 WKS ON- 2 WKS OFF
     Route: 048
     Dates: start: 20060707

REACTIONS (5)
  - ACUTE MYOCARDIAL INFARCTION [None]
  - THROMBOTIC STROKE [None]
  - GASTROENTERITIS [None]
  - RENAL FAILURE ACUTE [None]
  - HEMIPARESIS [None]
